FAERS Safety Report 4712612-6 (Version None)
Quarter: 2005Q3

REPORT INFORMATION
  Report Type: 
  Country: None (occurrence: None)
  Receive Date: 20050712
  Receipt Date: 20050315
  Transmission Date: 20060218
  Serious: Yes (Hospitalization, Other)
  Sender: FDA-Public Use
  Company Number: US-MERCK-0503USA03184

PATIENT
  Age: 45 Year
  Sex: Female
  Weight: 87 kg

DRUGS (4)
  1. VIOXX [Suspect]
     Indication: RHEUMATOID ARTHRITIS
     Route: 048
     Dates: start: 19991013, end: 20040411
  2. LORTAB [Concomitant]
     Indication: RHEUMATOID ARTHRITIS
     Route: 048
     Dates: start: 19980101
  3. INSULIN [Concomitant]
     Indication: DIABETES MELLITUS
     Route: 065
  4. LEVOTHYROXINE SODIUM [Concomitant]
     Indication: THYROID DISORDER
     Route: 048
     Dates: start: 19810101

REACTIONS (4)
  - CEREBROVASCULAR ACCIDENT [None]
  - HERNIA [None]
  - OEDEMA PERIPHERAL [None]
  - THROMBOSIS [None]
